FAERS Safety Report 9313225 (Version 1)
Quarter: 2013Q2

REPORT INFORMATION
  Report Type: Spontaneous
  Country: US (occurrence: US)
  Receive Date: 20130528
  Receipt Date: 20130528
  Transmission Date: 20140414
  Serious: No
  Sender: FDA-Public Use
  Company Number: US-ABBOTT-13P-163-1077421-00

PATIENT
  Age: 55 Year
  Sex: Male
  Weight: 115.77 kg

DRUGS (29)
  1. ANDROGEL [Suspect]
     Indication: BLOOD TESTOSTERONE DECREASED
     Dosage: 2 PUMPS
     Route: 061
     Dates: start: 20130318
  2. ATENOLOL [Concomitant]
     Indication: HYPERTENSION
  3. LISINOPRIL [Concomitant]
     Indication: HYPERTENSION
  4. AMLODIPINE [Concomitant]
     Indication: HYPERTENSION
  5. HYDROCHLOROTHIAZIDE [Concomitant]
     Indication: HYPERTENSION
  6. FLUOXETINE [Concomitant]
     Indication: DEPRESSION
  7. BUPROPION [Concomitant]
     Indication: DEPRESSION
  8. DICYCLOMINE [Concomitant]
     Indication: PRODUCT USED FOR UNKNOWN INDICATION
  9. TERAZOSIN [Concomitant]
     Indication: BENIGN PROSTATIC HYPERPLASIA
  10. INDOMETHACIN [Concomitant]
     Indication: PRODUCT USED FOR UNKNOWN INDICATION
  11. METHOCARBAMOL [Concomitant]
     Indication: MUSCLE RELAXANT THERAPY
  12. ALPRAZOLAM [Concomitant]
     Indication: ANXIETY
  13. TRAMADOL [Concomitant]
     Indication: PAIN
  14. AMITRIPTYLINE [Concomitant]
     Indication: PRODUCT USED FOR UNKNOWN INDICATION
  15. HYDROCODONE [Concomitant]
     Indication: PAIN
  16. MULTIVITAMIN [Concomitant]
     Indication: SUPPLEMENTATION THERAPY
  17. VITAMIN B COMPLEX [Concomitant]
     Indication: SUPPLEMENTATION THERAPY
  18. VITAMIN C [Concomitant]
     Indication: SUPPLEMENTATION THERAPY
  19. VITAMIN D3 [Concomitant]
     Indication: SUPPLEMENTATION THERAPY
  20. ZINC [Concomitant]
     Indication: SUPPLEMENTATION THERAPY
  21. MAGNESIUM [Concomitant]
     Indication: SUPPLEMENTATION THERAPY
  22. VITAMIN K2 [Concomitant]
     Indication: SUPPLEMENTATION THERAPY
  23. GLUTEN [Concomitant]
     Indication: SUPPLEMENTATION THERAPY
  24. TURMERIC [Concomitant]
     Indication: SUPPLEMENTATION THERAPY
  25. GARLIC [Concomitant]
     Indication: SUPPLEMENTATION THERAPY
  26. MILK THISTLE [Concomitant]
     Indication: SUPPLEMENTATION THERAPY
  27. FISH OIL [Concomitant]
     Indication: SUPPLEMENTATION THERAPY
  28. ALPHA LIPOIC ACID [Concomitant]
     Indication: SUPPLEMENTATION THERAPY
  29. ACIDOPHILUS [Concomitant]
     Indication: SUPPLEMENTATION THERAPY

REACTIONS (3)
  - Erectile dysfunction [Not Recovered/Not Resolved]
  - Alopecia [Not Recovered/Not Resolved]
  - Fatigue [Not Recovered/Not Resolved]
